FAERS Safety Report 21337233 (Version 3)
Quarter: 2022Q4

REPORT INFORMATION
  Report Type: Report from Study
  Country: CA (occurrence: CA)
  Receive Date: 20220915
  Receipt Date: 20221027
  Transmission Date: 20230113
  Serious: Yes (Other)
  Sender: FDA-Public Use
  Company Number: CA-NOVARTISPH-NVSC2022CA098514

PATIENT
  Age: 58 Year
  Sex: Female

DRUGS (2)
  1. ERELZI [Suspect]
     Active Substance: ETANERCEPT-SZZS
     Indication: Psoriasis
     Dosage: 50 MG, QW
     Route: 058
     Dates: start: 20211220
  2. ERELZI [Suspect]
     Active Substance: ETANERCEPT-SZZS
     Dosage: 50 MG, BIW
     Route: 058

REACTIONS (8)
  - Psoriatic arthropathy [Unknown]
  - Arthralgia [Unknown]
  - Joint swelling [Unknown]
  - Pruritus [Unknown]
  - Neck pain [Unknown]
  - Chest pain [Unknown]
  - Dysphagia [Unknown]
  - Drug ineffective [Unknown]

NARRATIVE: CASE EVENT DATE: 20211201
